FAERS Safety Report 9557878 (Version 2)
Quarter: 2013Q4

REPORT INFORMATION
  Report Type: Spontaneous
  Country: US (occurrence: US)
  Receive Date: 20130926
  Receipt Date: 20131009
  Transmission Date: 20140711
  Serious: Yes (Hospitalization, Other)
  Sender: FDA-Public Use
  Company Number: PHEH2013US019962

PATIENT
  Sex: Female

DRUGS (6)
  1. EXFORGE [Suspect]
     Dosage: 320 MG, UNK
  2. NOVOLOG [Concomitant]
     Dosage: UNK UKN, UNK
  3. SPIRIVA [Concomitant]
     Dosage: UNK UKN, UNK
  4. LIPITOR [Concomitant]
     Dosage: UNK UKN, UNK
  5. NEURONTIN [Concomitant]
     Dosage: UNK UKN, UNK
  6. SYMBICORT [Concomitant]
     Dosage: UNK UKN, UNK

REACTIONS (3)
  - Diabetes mellitus [Unknown]
  - Blood pressure abnormal [Unknown]
  - Headache [Unknown]
